FAERS Safety Report 21981306 (Version 1)
Quarter: 2023Q1

REPORT INFORMATION
  Report Type: Spontaneous
  Country: US (occurrence: US)
  Receive Date: 20230211
  Receipt Date: 20230211
  Transmission Date: 20230418
  Serious: No
  Sender: FDA-Public Use
  Company Number: US-ELI_LILLY_AND_COMPANY-US202302004973

PATIENT
  Age: 75 Year
  Sex: Male

DRUGS (1)
  1. HUMALOG [Suspect]
     Active Substance: INSULIN LISPRO
     Indication: Product used for unknown indication
     Dosage: 20 U, UNKNOWN
     Route: 058
     Dates: start: 20220130, end: 20230206

REACTIONS (1)
  - Anal incontinence [Unknown]

NARRATIVE: CASE EVENT DATE: 20230206
